FAERS Safety Report 5301493-8 (Version None)
Quarter: 2007Q2

REPORT INFORMATION
  Report Type: 
  Country: None (occurrence: None)
  Receive Date: 20070412
  Receipt Date: 20070327
  Transmission Date: 20071010
  Serious: Yes (Other)
  Sender: FDA-Public Use
  Company Number: TRP_0925_2007

PATIENT
  Sex: Female

DRUGS (2)
  1. RIBAPAK/ RIBAVIRIN/ THREE RIVERS PHARMA [Suspect]
     Indication: HEPATITIS C
     Dosage: DF  PO
     Route: 048
  2. PEGASYS [Suspect]
     Indication: HEPATITIS C
     Dosage: DF UNK SC
     Route: 058

REACTIONS (2)
  - ABORTION SPONTANEOUS [None]
  - DRUG EXPOSURE DURING PREGNANCY [None]
